FAERS Safety Report 9788935 (Version 1)
Quarter: 2013Q4

REPORT INFORMATION
  Report Type: Spontaneous
  Country: DE (occurrence: DE)
  Receive Date: 20131230
  Receipt Date: 20131230
  Transmission Date: 20140711
  Serious: Yes (Death, Life-Threatening, Hospitalization, Congenital Anomaly)
  Sender: FDA-Public Use
  Company Number: DE-GLAXOSMITHKLINE-D0082315A

PATIENT
  Age: 0 None
  Sex: Female
  Weight: 1.7 kg

DRUGS (3)
  1. PAROXETIN [Suspect]
     Indication: DEPRESSION
     Dosage: 40MG PER DAY
     Route: 064
     Dates: start: 20090414, end: 20090630
  2. FOLIC ACID [Concomitant]
     Indication: PROPHYLAXIS OF NEURAL TUBE DEFECT
     Dosage: .4MG PER DAY
     Route: 064
  3. KADEFUNGIN [Concomitant]
     Indication: VULVOVAGINAL MYCOTIC INFECTION
     Route: 067

REACTIONS (13)
  - Oesophageal atresia [Fatal]
  - Congenital tracheomalacia [Fatal]
  - Congenital diaphragmatic hernia [Recovered/Resolved with Sequelae]
  - Tracheo-oesophageal fistula [Recovered/Resolved with Sequelae]
  - Vitello-intestinal duct remnant [Unknown]
  - Patent ductus arteriosus [Recovered/Resolved]
  - Clinodactyly [Not Recovered/Not Resolved]
  - Abnormal palmar/plantar creases [Not Recovered/Not Resolved]
  - Anomaly of external ear congenital [Not Recovered/Not Resolved]
  - Atrial septal defect [Not Recovered/Not Resolved]
  - Infection [Unknown]
  - Sepsis [Unknown]
  - Premature baby [Unknown]
